FAERS Safety Report 10132570 (Version 3)
Quarter: 2014Q3

REPORT INFORMATION
  Report Type: Spontaneous
  Country: US (occurrence: US)
  Receive Date: 20140428
  Receipt Date: 20140924
  Transmission Date: 20150326
  Serious: Yes (Hospitalization, Other)
  Sender: FDA-Public Use
  Company Number: US-BAYER-2014-058726

PATIENT
  Age: 52 Year
  Sex: Female
  Weight: 104.31 kg

DRUGS (10)
  1. DILAUDID [Concomitant]
     Active Substance: HYDROMORPHONE HYDROCHLORIDE
     Indication: DEEP VEIN THROMBOSIS
  2. VISIPAQUE [IODIXANOL] [Concomitant]
  3. ROXICODONE [Concomitant]
     Active Substance: OXYCODONE HYDROCHLORIDE
     Indication: PAIN
  4. PHENERGAN [DIBROMPROPAMIDINE ISETIONATE,PROMETHAZINE HYDROCHLORIDE [Concomitant]
  5. ZOFRAN [Concomitant]
     Active Substance: ONDANSETRON HYDROCHLORIDE
  6. YAZ [Suspect]
     Active Substance: DROSPIRENONE\ETHINYL ESTRADIOL
     Indication: MENSTRUAL CYCLE MANAGEMENT
     Dosage: UNK
     Route: 048
     Dates: start: 20130728, end: 20130816
  7. ANCEF [Concomitant]
     Active Substance: CEFAZOLIN SODIUM
  8. FENTANYL. [Concomitant]
     Active Substance: FENTANYL
  9. MORPHINE [Concomitant]
     Active Substance: MORPHINE
     Indication: PAIN
  10. DILAUDID [Concomitant]
     Active Substance: HYDROMORPHONE HYDROCHLORIDE
     Indication: PULMONARY EMBOLISM

REACTIONS (20)
  - Pulmonary embolism [None]
  - Deafness [None]
  - Insomnia [None]
  - Cerebrovascular accident [None]
  - Anhedonia [None]
  - Cognitive disorder [None]
  - Brain injury [None]
  - Pelvic venous thrombosis [None]
  - Injury [None]
  - Pain [None]
  - Emotional distress [None]
  - Quality of life decreased [None]
  - Post-traumatic stress disorder [None]
  - Deep vein thrombosis [None]
  - Fear of disease [None]
  - Amnesia [None]
  - Thrombophlebitis superficial [None]
  - Anxiety [None]
  - Visual impairment [None]
  - Stress [None]

NARRATIVE: CASE EVENT DATE: 20130810
